FAERS Safety Report 16249132 (Version 1)
Quarter: 2019Q2

REPORT INFORMATION
  Report Type: Spontaneous
  Country: FR (occurrence: FR)
  Receive Date: 20190429
  Receipt Date: 20190429
  Transmission Date: 20190711
  Serious: Yes (Hospitalization)
  Sender: FDA-Public Use
  Company Number: FR-ACCORD-124508

PATIENT
  Age: 42 Year
  Sex: Male

DRUGS (7)
  1. AMANTADINE. [Concomitant]
     Active Substance: AMANTADINE HYDROCHLORIDE
  2. CLOZAPINE. [Suspect]
     Active Substance: CLOZAPINE
     Indication: PARANOID PERSONALITY DISORDER
     Route: 048
     Dates: start: 20190208, end: 20190211
  3. LOXAPINE. [Suspect]
     Active Substance: LOXAPINE
     Indication: PARANOID PERSONALITY DISORDER
     Route: 048
     Dates: start: 20190208, end: 20190211
  4. LORMETAZEPAM [Suspect]
     Active Substance: LORMETAZEPAM
     Indication: PARANOID PERSONALITY DISORDER
     Route: 048
     Dates: end: 20190208
  5. TROPATEPINE [Suspect]
     Active Substance: TROPATEPINE
     Indication: PRODUCT USED FOR UNKNOWN INDICATION
     Route: 048
     Dates: start: 20190208, end: 20190211
  6. ALPRAZOLAM. [Suspect]
     Active Substance: ALPRAZOLAM
     Indication: PARANOID PERSONALITY DISORDER
     Route: 048
     Dates: end: 20190208
  7. NITRAZEPAM [Concomitant]
     Active Substance: NITRAZEPAM

REACTIONS (2)
  - Seizure [Recovered/Resolved]
  - Drug withdrawal convulsions [Recovered/Resolved]

NARRATIVE: CASE EVENT DATE: 20190211
